FAERS Safety Report 25047170 (Version 4)
Quarter: 2025Q2

REPORT INFORMATION
  Report Type: Spontaneous
  Country: BE (occurrence: BE)
  Receive Date: 20250306
  Receipt Date: 20250505
  Transmission Date: 20250716
  Serious: No
  Sender: PFIZER
  Company Number: BE-PFIZER INC-202500047675

PATIENT
  Sex: Female

DRUGS (1)
  1. ENBREL [Suspect]
     Active Substance: ETANERCEPT
     Dates: start: 2018

REACTIONS (3)
  - Device safety feature issue [Unknown]
  - Injection site pain [Unknown]
  - Injection site haemorrhage [Unknown]
